FAERS Safety Report 16384950 (Version 7)
Quarter: 2020Q1

REPORT INFORMATION
  Report Type: Report from Study
  Country: US (occurrence: US)
  Receive Date: 20190603
  Receipt Date: 20200103
  Transmission Date: 20200409
  Serious: Yes (Other)
  Sender: FDA-Public Use
  Company Number: US-JNJFOC-20190539332

PATIENT
  Age: 47 Year
  Sex: Female

DRUGS (39)
  1. SPRAVATO [Suspect]
     Active Substance: ESKETAMINE
     Dosage: ADMIN START: 12:50 HOURS; TREATMENT SESSION END TIME: 14:50 HOURS
     Dates: start: 20190528, end: 20190528
  2. SPRAVATO [Suspect]
     Active Substance: ESKETAMINE
     Dosage: ADMIN START: 09:00 HOURS; TREATMENT SESSION END TIME: 11:00 HOURS
     Dates: start: 20190614, end: 20190614
  3. SPRAVATO [Suspect]
     Active Substance: ESKETAMINE
     Dosage: ADMIN START: 10:00 HOURS; TREATMENT SESSION END TIME: 12:00 HOURS
     Dates: start: 20190627, end: 20190627
  4. SPRAVATO [Suspect]
     Active Substance: ESKETAMINE
     Dosage: ADMIN START: 09:00 HOURS; TREATMENT SESSION END TIME: 11:00 HOURS
     Dates: start: 20190806, end: 20190806
  5. SPRAVATO [Suspect]
     Active Substance: ESKETAMINE
     Dosage: ADMIN START: 12:00 HOURS; TREATMENT SESSION END TIME: 14:00 HOURS
     Dates: start: 20190905, end: 20190905
  6. SPRAVATO [Suspect]
     Active Substance: ESKETAMINE
     Dosage: ADMIN START: 12:00 HOURS; TREATMENT SESSION END TIME: 14:00 HOURS
     Dates: start: 20190919, end: 20190919
  7. ADDERALL [Suspect]
     Active Substance: AMPHETAMINE ASPARTATE\AMPHETAMINE SULFATE\DEXTROAMPHETAMINE SACCHARATE\DEXTROAMPHETAMINE SULFATE
     Indication: ATTENTION DEFICIT/HYPERACTIVITY DISORDER
     Route: 048
  8. SPRAVATO [Suspect]
     Active Substance: ESKETAMINE
     Dosage: ADMIN START: 12:00 HOURS; TREATMENT SESSION END TIME: 14:00 HOURS
     Dates: start: 20190917, end: 20190917
  9. SPRAVATO [Suspect]
     Active Substance: ESKETAMINE
     Dosage: ADMIN START: 11:30 HOURS; TREATMENT SESSION END TIME: 13:30 HOURS
     Dates: start: 20191003, end: 20191003
  10. SPRAVATO [Suspect]
     Active Substance: ESKETAMINE
     Dosage: ADMIN START: 10:00 HOURS; TREATMENT SESSION END TIME: 12:00 HOURS
     Dates: start: 20191022, end: 20191022
  11. SPRAVATO [Suspect]
     Active Substance: ESKETAMINE
     Dosage: ADMIN START: 12:00 HOURS; TREATMENT SESSION END TIME: 14:00 HOURS
     Dates: start: 20191104, end: 20191104
  12. SPRAVATO [Suspect]
     Active Substance: ESKETAMINE
     Dosage: ADMIN START: 14:30 HOURS; TREATMENT SESSION END TIME: 16:30 HOURS
     Dates: start: 20190530, end: 20190530
  13. SPRAVATO [Suspect]
     Active Substance: ESKETAMINE
     Dosage: ADMIN START: 13:45 HOURS; TREATMENT SESSION END TIME: 15:45 HOURS
     Dates: start: 20190618, end: 20190618
  14. SPRAVATO [Suspect]
     Active Substance: ESKETAMINE
     Dosage: ADMIN START: 12:50 HOURS; TREATMENT SESSION END TIME: 14:50 HOURS
     Dates: start: 20190717, end: 20190717
  15. SPRAVATO [Suspect]
     Active Substance: ESKETAMINE
     Dosage: ADMIN START: 13:00 HOURS; TREATMENT SESSION END TIME: 15:00 HOURS
     Dates: start: 20190815, end: 20190815
  16. SPRAVATO [Suspect]
     Active Substance: ESKETAMINE
     Dosage: ADMIN START: 11:45 HOURS; TREATMENT SESSION END TIME: 13:45 HOURS
     Dates: start: 20190924, end: 20190924
  17. SPRAVATO [Suspect]
     Active Substance: ESKETAMINE
     Dosage: ADMIN START: 09:00 HOURS; TREATMENT SESSION END TIME: 11:00 HOURS
     Dates: start: 20191018, end: 20191018
  18. SPRAVATO [Suspect]
     Active Substance: ESKETAMINE
     Dosage: ADMIN START: 14:00 HOURS; TREATMENT SESSION END TIME: 16:00 HOURS
     Dates: start: 20191030, end: 20191030
  19. SPRAVATO [Suspect]
     Active Substance: ESKETAMINE
     Dosage: ADMIN START: 12:00 HOURS; TREATMENT SESSION END TIME: 14:00 HOURS
     Dates: start: 20191118, end: 20191118
  20. SPRAVATO [Suspect]
     Active Substance: ESKETAMINE
     Dosage: ADMIN START: 12:00 HOURS; TREATMENT SESSION END TIME: 14:00 HOURS
     Dates: start: 20191209, end: 20191209
  21. SPRAVATO [Suspect]
     Active Substance: ESKETAMINE
     Dosage: ADMIN START: 13:15 HOURS; TREATMENT SESSION END TIME: 15:15 HOURS
     Dates: start: 20190703, end: 20190703
  22. SPRAVATO [Suspect]
     Active Substance: ESKETAMINE
     Dosage: ADMIN START: 08:30 HOURS; TREATMENT SESSION END TIME: 10:30 HOURS
     Dates: start: 20190731, end: 20190731
  23. FOCALIN [Suspect]
     Active Substance: DEXMETHYLPHENIDATE HYDROCHLORIDE
     Indication: ATTENTION DEFICIT/HYPERACTIVITY DISORDER
     Route: 048
  24. SPRAVATO [Suspect]
     Active Substance: ESKETAMINE
     Dosage: ADMIN START: 09:00 HOURS; TREATMENT SESSION END TIME: 11:00 HOURS
     Dates: start: 20190607, end: 20190607
  25. SPRAVATO [Suspect]
     Active Substance: ESKETAMINE
     Dosage: ADMIN START: 13:00 HOURS; TREATMENT SESSION END TIME: 15:00 HOURS
     Dates: start: 20190625, end: 20190625
  26. SPRAVATO [Suspect]
     Active Substance: ESKETAMINE
     Dosage: ADMIN START: 08:00 HOURS; TREATMENT SESSION END TIME: 10:00 HOURS
     Dates: start: 20190813, end: 20190813
  27. SPRAVATO [Suspect]
     Active Substance: ESKETAMINE
     Dosage: ADMIN START: 11:45 HOURS; TREATMENT SESSION END TIME: 13:45 HOURS
     Dates: start: 20190926, end: 20190926
  28. SPRAVATO [Suspect]
     Active Substance: ESKETAMINE
     Dosage: ADMIN START: 12:00 HOURS; TREATMENT SESSION END TIME: 14:00 HOURS
     Dates: start: 20191009, end: 20191009
  29. SPRAVATO [Suspect]
     Active Substance: ESKETAMINE
     Dosage: ADMIN START: 11:30 HOURS; TREATMENT SESSION END TIME: 13:30 HOURS
     Dates: start: 20191024, end: 20191024
  30. TRINTELLIX [Concomitant]
     Active Substance: VORTIOXETINE HYDROBROMIDE
     Indication: DEPRESSION
     Route: 048
  31. SPRAVATO [Suspect]
     Active Substance: ESKETAMINE
     Dosage: ADMIN START: 13:00 HOURS; TREATMENT SESSION END TIME: 15:00 HOURS
     Dates: start: 20190808, end: 20190808
  32. SPRAVATO [Suspect]
     Active Substance: ESKETAMINE
     Dosage: ADMIN START: 10:30 HOURS; TREATMENT SESSION END TIME: 12:30 HOURS
     Dates: start: 20191031, end: 20191031
  33. SPRAVATO [Suspect]
     Active Substance: ESKETAMINE
     Indication: DEPRESSION
     Dosage: FIRST DOSE; ADMIN START: 12:10 HOURS; TREATMENT SESSION END TIME: 14:10 HOUR
     Dates: start: 20190523, end: 20190523
  34. SPRAVATO [Suspect]
     Active Substance: ESKETAMINE
     Dosage: ADMIN START: 13:00 HOURS; TREATMENT SESSION END TIME: 15:00 HOURS
     Dates: start: 20190604, end: 20190604
  35. SPRAVATO [Suspect]
     Active Substance: ESKETAMINE
     Dosage: ADMIN START: 13:00 HOURS; TREATMENT SESSION END TIME: 15:00 HOURS
     Dates: start: 20190620, end: 20190620
  36. SPRAVATO [Suspect]
     Active Substance: ESKETAMINE
     Dosage: ADMIN START: 13:30 HOURS; TREATMENT SESSION END TIME: 15:30 HOURS
     Dates: start: 20190708, end: 20190708
  37. SPRAVATO [Suspect]
     Active Substance: ESKETAMINE
     Dosage: ADMIN START: 10:00 HOURS; TREATMENT SESSION END TIME: 12:00 HOURS
     Dates: start: 20190725, end: 20190725
  38. VRAYLAR [Suspect]
     Active Substance: CARIPRAZINE
     Indication: BIPOLAR DISORDER
     Route: 048
  39. SPRAVATO [Suspect]
     Active Substance: ESKETAMINE
     Dosage: ADMIN START: 14:00 HOURS; TREATMENT SESSION END TIME: 16:00 HOURS
     Dates: start: 20190820, end: 20190820

REACTIONS (10)
  - Accident [Recovered/Resolved]
  - Throat irritation [Unknown]
  - Somnolence [Unknown]
  - Road traffic accident [Recovered/Resolved]
  - Feeling drunk [Recovered/Resolved]
  - Speech disorder [Recovered/Resolved]
  - Altered visual depth perception [Recovered/Resolved]
  - General physical health deterioration [Recovered/Resolved]
  - Hand-eye coordination impaired [Recovered/Resolved]
  - Clumsiness [Unknown]

NARRATIVE: CASE EVENT DATE: 20190524
